FAERS Safety Report 15188574 (Version 13)
Quarter: 2020Q4

REPORT INFORMATION
  Report Type: Spontaneous
  Country: CA (occurrence: CA)
  Receive Date: 20180724
  Receipt Date: 20201009
  Transmission Date: 20210113
  Serious: Yes (Hospitalization, Other)
  Sender: FDA-Public Use
  Company Number: CA-CELLTRION INC.-2018CA021497

PATIENT

DRUGS (15)
  1. INFLECTRA [Suspect]
     Active Substance: INFLIXIMAB-DYYB
     Dosage: 900 MG, EVERY 0, 2, 6 WEEKS THE EVERY 8 WEEKS
     Route: 042
     Dates: start: 20180924
  2. INFLECTRA [Suspect]
     Active Substance: INFLIXIMAB-DYYB
     Dosage: 900 MG, EVERY 0, 2, 6 WEEKS THE EVERY 8 WEEKS
     Route: 042
     Dates: start: 20190313
  3. PENTASA [Concomitant]
     Active Substance: MESALAMINE
     Dosage: 4 G, 1X/DAY (HS FOR 2 MONTHS)
     Route: 054
     Dates: start: 20180503
  4. INFLECTRA [Suspect]
     Active Substance: INFLIXIMAB-DYYB
     Dosage: 900 MG, 0, 2, 6 WEEKS, THEN EVERY 8 WEEKS
     Route: 042
     Dates: start: 20180712
  5. INFLECTRA [Suspect]
     Active Substance: INFLIXIMAB-DYYB
     Indication: COLITIS ULCERATIVE
     Dosage: 900 MG, 0, 2, 6 WEEKS, THEN EVERY 8 WEEKS
     Route: 042
     Dates: start: 20180628, end: 20180628
  6. INFLECTRA [Suspect]
     Active Substance: INFLIXIMAB-DYYB
     Dosage: 900 MG, 0, 2, 6 WEEKS, THEN EVERY 8 WEEKS
     Route: 042
     Dates: start: 20180712
  7. INFLECTRA [Suspect]
     Active Substance: INFLIXIMAB-DYYB
     Dosage: 900 MG, EVERY 0, 2, 6 WEEKS THE EVERY 8 WEEKS)
     Route: 042
     Dates: start: 20181119
  8. INFLECTRA [Suspect]
     Active Substance: INFLIXIMAB-DYYB
     Dosage: 900 MG, EVERY 0, 2, 6 WEEKS THE EVERY 8 WEEKS
     Route: 042
     Dates: start: 20190115
  9. INFLECTRA [Suspect]
     Active Substance: INFLIXIMAB-DYYB
     Dosage: 900 MG, EVERY 0, 2, 6 WEEKS THE EVERY 8 WEEKS
     Route: 042
     Dates: start: 20181123
  10. INFLECTRA [Suspect]
     Active Substance: INFLIXIMAB-DYYB
     Dosage: 900 MG, EVERY 0, 2, 6 WEEKS THE EVERY 8 WEEKS
     Route: 042
     Dates: start: 20190508
  11. INFLECTRA [Suspect]
     Active Substance: INFLIXIMAB-DYYB
     Dosage: 900 MG, 0, 2, 6 WEEKS, THEN EVERY 8 WEEKS
     Route: 042
     Dates: start: 20180712, end: 20180712
  12. PREDNISONE TEVA [Concomitant]
     Active Substance: PREDNISONE
     Dosage: 5 MG, 1X/DAY IN THE MORNING
     Route: 048
     Dates: start: 20180503
  13. CORTISONE [Concomitant]
     Active Substance: CORTISONE
     Dosage: UNK
  14. AREDIA [Concomitant]
     Active Substance: PAMIDRONATE DISODIUM
     Indication: PLASMA CELL MYELOMA
     Dosage: UNK, EVERY 4 WEEKS
     Route: 042
  15. INFLECTRA [Suspect]
     Active Substance: INFLIXIMAB-DYYB
     Dosage: 900 MG, 0, 2, 6 WEEKS THE EVERY 8 WEEKS
     Route: 042
     Dates: start: 20180731

REACTIONS (9)
  - Lung disorder [Unknown]
  - Abdominal pain [Recovering/Resolving]
  - Loss of consciousness [Unknown]
  - Head injury [Unknown]
  - Vertebral lesion [Unknown]
  - Weight decreased [Unknown]
  - Inappropriate schedule of product administration [Unknown]
  - Condition aggravated [Recovering/Resolving]
  - Blood pressure fluctuation [Unknown]

NARRATIVE: CASE EVENT DATE: 2018
